FAERS Safety Report 9245902 (Version 1)
Quarter: 2013Q2

REPORT INFORMATION
  Report Type: Spontaneous
  Country: SE (occurrence: SE)
  Receive Date: 20130422
  Receipt Date: 20130422
  Transmission Date: 20140414
  Serious: Yes (Hospitalization)
  Sender: FDA-Public Use
  Company Number: SE-NOVOPROD-375533

PATIENT
  Age: 80 Year
  Sex: Female

DRUGS (2)
  1. VAGIFEM [Suspect]
     Indication: URINARY TRACT INFECTION
     Dosage: UNK
     Route: 067
  2. VAGIFEM [Suspect]
     Indication: VULVOVAGINAL DRYNESS

REACTIONS (2)
  - Portal vein thrombosis [Unknown]
  - Mesenteric vein thrombosis [Unknown]
